FAERS Safety Report 8923178 (Version 1)
Quarter: 2012Q4

REPORT INFORMATION
  Report Type: 
  Country: AU (occurrence: AU)
  Receive Date: 20121124
  Receipt Date: 20121124
  Transmission Date: 20130627
  Serious: Yes (Other)
  Sender: FDA-Public Use
  Company Number: PHHY2012AU106623

PATIENT
  Sex: Male

DRUGS (1)
  1. ACLASTA [Suspect]
     Indication: OSTEOPOROSIS
     Dosage: 5 mg
     Route: 042
     Dates: start: 20111209

REACTIONS (4)
  - Convulsion [Recovered/Resolved]
  - Hyperventilation [Recovered/Resolved]
  - Feeling of body temperature change [Recovered/Resolved]
  - Muscle spasms [Recovered/Resolved]
